FAERS Safety Report 21769971 (Version 3)
Quarter: 2023Q1

REPORT INFORMATION
  Report Type: Report from Study
  Country: DE (occurrence: DE)
  Receive Date: 20221223
  Receipt Date: 20230111
  Transmission Date: 20230417
  Serious: Yes (Other)
  Sender: FDA-Public Use
  Company Number: DE-002147023-NVSC2022DE295141

PATIENT
  Sex: Female
  Weight: 60 kg

DRUGS (3)
  1. ELTROMBOPAG [Suspect]
     Active Substance: ELTROMBOPAG
     Indication: Aplastic anaemia
     Dosage: CODE NOT BROKEN
     Route: 048
     Dates: start: 20221206, end: 20221219
  2. INVESTIGATIONAL PRODUCT [Suspect]
     Active Substance: INVESTIGATIONAL PRODUCT
     Indication: Aplastic anaemia
     Dosage: CODE NOT BROKEN
     Route: 048
     Dates: start: 20221206, end: 20221219
  3. PLACEBO [Suspect]
     Active Substance: UNSPECIFIED INGREDIENT
     Indication: Aplastic anaemia
     Dosage: CODE NOT BROKEN
     Route: 048
     Dates: start: 20221206, end: 20221219

REACTIONS (1)
  - Visual impairment [Not Recovered/Not Resolved]

NARRATIVE: CASE EVENT DATE: 20221219
